FAERS Safety Report 15311842 (Version 1)
Quarter: 2018Q3

REPORT INFORMATION
  Report Type: Spontaneous
  Country: US (occurrence: US)
  Receive Date: 20180814
  Receipt Date: 20180814
  Transmission Date: 20181010
  Serious: Yes (Death)
  Sender: FDA-Public Use
  Company Number: None

PATIENT
  Age: 23 Year
  Sex: Male
  Weight: 56.25 kg

DRUGS (2)
  1. TRAMODOL [Suspect]
     Active Substance: TRAMADOL
     Indication: ANXIETY
     Route: 048
  2. TRAMODOL [Suspect]
     Active Substance: TRAMADOL
     Indication: PAIN
     Route: 048

REACTIONS (2)
  - Drug interaction [None]
  - Overdose [None]

NARRATIVE: CASE EVENT DATE: 20170222
